FAERS Safety Report 23819914 (Version 1)
Quarter: 2024Q2

REPORT INFORMATION
  Report Type: Spontaneous
  Country: US (occurrence: US)
  Receive Date: 20240506
  Receipt Date: 20240506
  Transmission Date: 20240716
  Serious: Yes (Other)
  Sender: FDA-Public Use
  Company Number: US-APOTEX-2024AP005527

PATIENT
  Age: 49 Year
  Sex: Male

DRUGS (6)
  1. MYCOPHENOLIC ACID [Suspect]
     Active Substance: MYCOPHENOLIC ACID
     Indication: Immunosuppressant drug therapy
     Dosage: 360 MILLIGRAM, BID
     Route: 065
  2. MYCOPHENOLIC ACID [Suspect]
     Active Substance: MYCOPHENOLIC ACID
     Dosage: 720 MILLIGRAM, BID
     Route: 065
  3. TACROLIMUS [Concomitant]
     Active Substance: TACROLIMUS
     Indication: Immunosuppressant drug therapy
     Dosage: UNK
     Route: 065
  4. PREDNISONE [Concomitant]
     Active Substance: PREDNISONE
     Indication: Immunosuppressant drug therapy
     Dosage: UNK(5/2.5MG )
     Route: 065
  5. PREDNISONE [Concomitant]
     Active Substance: PREDNISONE
     Dosage: 60 MILLIGRAM
     Route: 065
  6. PREDNISONE [Concomitant]
     Active Substance: PREDNISONE
     Dosage: UNK (DECREASING BY 10MG EVERY 3 DAYS )
     Route: 065

REACTIONS (2)
  - Leukopenia [Unknown]
  - Cytomegalovirus viraemia [Unknown]
